FAERS Safety Report 5737934-1 (Version None)
Quarter: 2008Q2

REPORT INFORMATION
  Report Type: 
  Country: None (occurrence: None)
  Receive Date: 20080514
  Receipt Date: 20080507
  Transmission Date: 20081010
  Serious: Yes (Hospitalization, Disabling)
  Sender: FDA-Public Use
  Company Number: GB-ALLERGAN-0702397US

PATIENT
  Sex: Female

DRUGS (8)
  1. DYSPORT [Suspect]
     Indication: MUSCLE SPASTICITY
     Dosage: 500 UNITS, UNK
     Route: 030
     Dates: start: 20070115, end: 20070116
  2. DYSPORT [Suspect]
     Dosage: 500 UNITS, UNK
     Dates: start: 20020101, end: 20020101
  3. BACLOFEN [Concomitant]
     Indication: DRUG USE FOR UNKNOWN INDICATION
  4. BECLOMETHASONE DIPROPIONATE [Concomitant]
     Indication: DRUG USE FOR UNKNOWN INDICATION
     Route: 055
  5. DESLORATADINE [Concomitant]
     Indication: DRUG USE FOR UNKNOWN INDICATION
     Dosage: 5 G, UNK
  6. MICROGYNON [Concomitant]
     Indication: DRUG USE FOR UNKNOWN INDICATION
  7. RANITIDINE [Concomitant]
     Indication: DRUG USE FOR UNKNOWN INDICATION
  8. ALBUTEROL [Concomitant]
     Indication: DRUG USE FOR UNKNOWN INDICATION
     Route: 055

REACTIONS (1)
  - ASTHENIA [None]
